FAERS Safety Report 7930253-4 (Version None)
Quarter: 2011Q4

REPORT INFORMATION
  Report Type: 
  Country: None (occurrence: None)
  Receive Date: 20111121
  Receipt Date: 20110816
  Transmission Date: 20120403
  Serious: No
  Sender: FDA-Public Use
  Company Number: US-BAYER-2011-078741

PATIENT

DRUGS (4)
  1. ALEVE (CAPLET) [Suspect]
     Indication: MUSCULOSKELETAL STIFFNESS
  2. ALEVE (CAPLET) [Suspect]
     Indication: MUSCLE SPASTICITY
  3. ALEVE (CAPLET) [Suspect]
     Indication: PAIN
  4. MOTRIN [Concomitant]
     Indication: MUSCULOSKELETAL STIFFNESS

REACTIONS (2)
  - MUSCLE SPASTICITY [None]
  - DRUG INEFFECTIVE [None]
